FAERS Safety Report 5776199-1 (Version None)
Quarter: 2008Q2

REPORT INFORMATION
  Report Type: 
  Country: None (occurrence: None)
  Receive Date: 20080618
  Receipt Date: 20080610
  Transmission Date: 20081010
  Serious: Yes (Death)
  Sender: FDA-Public Use
  Company Number: GB-RANBAXY-2008RR-15854

PATIENT

DRUGS (8)
  1. ZIDOVUDINE TABLETS [Suspect]
     Indication: ANTIVIRAL PROPHYLAXIS
     Dosage: UNK
     Route: 065
  2. ZIDOVUDINE TABLETS [Suspect]
     Indication: HIV INFECTION
     Dosage: UNK
  3. COMBIVIR [Suspect]
     Indication: HIV INFECTION
     Dosage: UNK
  4. KALETRA [Suspect]
     Indication: HIV INFECTION
     Dosage: UNK
  5. LAMIVUDINE [Suspect]
     Indication: ANTIVIRAL PROPHYLAXIS
     Dosage: UNK
     Route: 065
  6. NEVIRAPINE [Suspect]
     Indication: ANTIVIRAL PROPHYLAXIS
     Dosage: UNK
     Route: 065
  7. NEVIRAPINE [Suspect]
     Indication: HIV INFECTION
     Dosage: UNK
  8. SEPTRIN [Suspect]
     Indication: DRUG USE FOR UNKNOWN INDICATION
     Dosage: UNK
     Route: 065

REACTIONS (3)
  - DEATH [None]
  - DRUG EXPOSURE DURING PREGNANCY [None]
  - MATERNAL DRUGS AFFECTING FOETUS [None]
